FAERS Safety Report 20326441 (Version 2)
Quarter: 2022Q3

REPORT INFORMATION
  Report Type: Spontaneous
  Country: JP (occurrence: JP)
  Receive Date: 20220112
  Receipt Date: 20220919
  Transmission Date: 20221027
  Serious: Yes (Death, Other)
  Sender: FDA-Public Use
  Company Number: JP-ASTELLAS-2022JP000300

PATIENT
  Sex: Female

DRUGS (3)
  1. XOSPATA [Suspect]
     Active Substance: GILTERITINIB
     Indication: Acute myeloid leukaemia recurrent
     Dosage: UNK UNK, UNKNOWN FREQ.
     Route: 048
  2. XOSPATA [Suspect]
     Active Substance: GILTERITINIB
     Indication: Acute myeloid leukaemia
     Route: 048
     Dates: start: 20211102
  3. XOSPATA [Suspect]
     Active Substance: GILTERITINIB
     Route: 048

REACTIONS (2)
  - Cytopenia [Unknown]
  - Transplantation complication [Fatal]
